FAERS Safety Report 24352410 (Version 1)
Quarter: 2024Q3

REPORT INFORMATION
  Report Type: Report from Study
  Country: US (occurrence: US)
  Receive Date: 20240923
  Receipt Date: 20240923
  Transmission Date: 20241017
  Serious: No
  Sender: ROCHE
  Company Number: US-ROCHE-3577587

PATIENT
  Age: 39 Year
  Sex: Male

DRUGS (2)
  1. HERCEPTIN [Suspect]
     Active Substance: TRASTUZUMAB
     Indication: Breast cancer female
     Dosage: DATE OF SERVICE: 22/MAY/2024
     Route: 065
  2. AVASTIN [Suspect]
     Active Substance: BEVACIZUMAB
     Indication: Breast cancer female
     Route: 042

REACTIONS (2)
  - Vertigo [Unknown]
  - Bone scan abnormal [Unknown]

NARRATIVE: CASE EVENT DATE: 20240524
